FAERS Safety Report 6877306-X (Version None)
Quarter: 2010Q3

REPORT INFORMATION
  Report Type: 
  Country: None (occurrence: None)
  Receive Date: 20100713
  Receipt Date: 20100630
  Transmission Date: 20110219
  Serious: Yes (Hospitalization)
  Sender: FDA-Public Use
  Company Number: 20100622CINRY1528

PATIENT
  Age: 16 Year
  Sex: Male

DRUGS (3)
  1. CINRYZE [Suspect]
     Indication: HEREDITARY ANGIOEDEMA
     Dosage: (1000 UNIT,L IN 3 T ) , INTRAVENOUS
     Route: 042
     Dates: start: 20100401
  2. CINRYZE [Suspect]
     Indication: PROPHYLAXIS
     Dosage: (1000 UNIT,L IN 3 T ) , INTRAVENOUS
     Route: 042
     Dates: start: 20100401
  3. PROGRAF (TACROLTMUS) [Concomitant]

REACTIONS (2)
  - ABDOMINAL DISTENSION [None]
  - ABDOMINAL PAIN [None]
